FAERS Safety Report 18891575 (Version 2)
Quarter: 2023Q2

REPORT INFORMATION
  Report Type: Report from Study
  Country: CH (occurrence: CH)
  Receive Date: 20210215
  Receipt Date: 20230622
  Transmission Date: 20230722
  Serious: Yes (Other)
  Sender: FDA-Public Use
  Company Number: CH-AUROBINDO-AUR-APL-2021-006253

PATIENT
  Sex: Male

DRUGS (2)
  1. MELPHALAN [Suspect]
     Active Substance: MELPHALAN
     Indication: Haematological malignancy
     Dosage: 140 MILLIGRAM/SQ. METER
     Route: 065
  2. TREOSULFAN [Suspect]
     Active Substance: TREOSULFAN
     Indication: Haematological malignancy
     Dosage: 36 GRAM/SQ. METER
     Route: 065

REACTIONS (1)
  - Renal tubular injury [Unknown]
